FAERS Safety Report 24156844 (Version 1)
Quarter: 2024Q3

REPORT INFORMATION
  Report Type: Spontaneous
  Country: SK (occurrence: SK)
  Receive Date: 20240731
  Receipt Date: 20240731
  Transmission Date: 20241016
  Serious: Yes (Other)
  Sender: BAYER
  Company Number: SK-BAYER-2024A109765

PATIENT
  Age: 58 Year
  Sex: Male

DRUGS (2)
  1. NEXAVAR [Suspect]
     Active Substance: SORAFENIB
     Indication: Renal cell carcinoma
     Dosage: UNK
     Dates: start: 202211
  2. NEXAVAR [Suspect]
     Active Substance: SORAFENIB
     Indication: Metastases to lymph nodes

REACTIONS (1)
  - Renal cell carcinoma [None]
